FAERS Safety Report 8455214-0 (Version None)
Quarter: 2012Q2

REPORT INFORMATION
  Report Type: 
  Country: None (occurrence: None)
  Receive Date: 20120621
  Receipt Date: 20120613
  Transmission Date: 20120825
  Serious: Yes (Hospitalization)
  Sender: FDA-Public Use
  Company Number: US-ASTELLAS-2012US005494

PATIENT
  Sex: Male
  Weight: 61 kg

DRUGS (2)
  1. BEVACIZUMAB [Suspect]
     Indication: NON-SMALL CELL LUNG CANCER RECURRENT
     Dosage: 15 MG/KG, Q 21DAYS
     Route: 042
     Dates: start: 20090327, end: 20120525
  2. ERLOTINIB HYDROCHLORIDE [Suspect]
     Indication: NON-SMALL CELL LUNG CANCER RECURRENT
     Dosage: UNK, QHS
     Route: 048
     Dates: start: 20090327, end: 20120525

REACTIONS (2)
  - FISTULA [None]
  - RETROPERITONEAL ABSCESS [None]
